FAERS Safety Report 8846058 (Version 2)
Quarter: 2012Q4

REPORT INFORMATION
  Report Type: 
  Country: US (occurrence: US)
  Receive Date: 20121017
  Receipt Date: 20121101
  Transmission Date: 20130627
  Serious: Yes (Hospitalization, Other)
  Sender: FDA-Public Use
  Company Number: US-BAXTER-2012BAX019483

PATIENT
  Age: 63 Year
  Sex: Female

DRUGS (2)
  1. DIANEAL LOW CALCIUM [Suspect]
     Indication: PERITONEAL DIALYSIS
     Route: 033
  2. DIANEAL LOW CALCIUM [Suspect]
     Indication: PERITONEAL DIALYSIS
     Route: 033

REACTIONS (7)
  - Pulmonary oedema [Unknown]
  - Weight decreased [Unknown]
  - Peritonitis bacterial [Recovering/Resolving]
  - Asthenia [Unknown]
  - Pain threshold decreased [Unknown]
  - Peritoneal dialysis complication [Recovered/Resolved]
  - Pain [Unknown]
